FAERS Safety Report 13449539 (Version 2)
Quarter: 2017Q2

REPORT INFORMATION
  Report Type: Other
  Country: JP (occurrence: JP)
  Receive Date: 20170417
  Receipt Date: 20170519
  Transmission Date: 20170830
  Serious: Yes (Other)
  Sender: FDA-Public Use
  Company Number: JP-LABORATOIRE HRA PHARMA-1065445

PATIENT
  Age: 30 Year
  Sex: Female
  Weight: 41 kg

DRUGS (1)
  1. METOPIRONE [Suspect]
     Active Substance: METYRAPONE
     Indication: PITUITARY-DEPENDENT CUSHING^S SYNDROME
     Route: 048
     Dates: start: 20151208

REACTIONS (5)
  - Vasculitis [None]
  - Intestinal ischaemia [None]
  - Intestinal ischaemia [None]
  - Intra-abdominal haemorrhage [None]
  - Adrenal insufficiency [None]

NARRATIVE: CASE EVENT DATE: 20160606
